FAERS Safety Report 7133420-5 (Version None)
Quarter: 2010Q4

REPORT INFORMATION
  Report Type: 
  Country: None (occurrence: None)
  Receive Date: 20101202
  Receipt Date: 20101119
  Transmission Date: 20110411
  Serious: Yes (Life-Threatening)
  Sender: FDA-Public Use
  Company Number: CA-WATSON-2010-15398

PATIENT
  Age: 16 Day

DRUGS (2)
  1. LAMOTRIGINE [Suspect]
     Indication: PRODUCT USED FOR UNKNOWN INDICATION
     Dosage: 875 MG, DAILY
     Route: 064
  2. LAMOTRIGINE [Suspect]
     Dosage: UNK
     Route: 063

REACTIONS (2)
  - APNOEA [None]
  - CYANOSIS [None]
